FAERS Safety Report 4273744-2 (Version None)
Quarter: 2004Q1

REPORT INFORMATION
  Report Type: 
  Country: None (occurrence: None)
  Receive Date: 20040119
  Receipt Date: 20031021
  Transmission Date: 20041129
  Serious: Yes (Other)
  Sender: FDA-Public Use
  Company Number: PHEH2003US09683

PATIENT
  Age: 54 Year
  Sex: Female

DRUGS (2)
  1. AREDIA [Suspect]
     Indication: OSTEOPOROSIS
     Dosage: UNK, Q3MO
     Route: 042
     Dates: start: 20010101, end: 20030601
  2. ATIVAN [Concomitant]

REACTIONS (4)
  - INJECTION SITE BURNING [None]
  - MALABSORPTION [None]
  - VISUAL ACUITY REDUCED [None]
  - VITAMIN A DEFICIENCY [None]
